FAERS Safety Report 8986208 (Version 1)
Quarter: 2012Q4

REPORT INFORMATION
  Report Type: Spontaneous
  Country: IE (occurrence: None)
  Receive Date: 20121031
  Receipt Date: 20121031
  Transmission Date: 20130627
  Serious: Yes (Hospitalization)
  Sender: FDA-Public Use
  Company Number: 219189

PATIENT
  Age: 36 Year
  Sex: Female

DRUGS (1)
  1. INNOHEP (TINZAPARIN SODIUM) [Suspect]
     Indication: VENOUS THROMBOEMBOLISM PROPHYLAXIS
     Route: 058

REACTIONS (3)
  - Exposure during pregnancy [None]
  - Off label use [None]
  - Pulmonary embolism [None]
